FAERS Safety Report 13675972 (Version 1)
Quarter: 2017Q2

REPORT INFORMATION
  Report Type: Report from Study
  Country: JP (occurrence: JP)
  Receive Date: 20170622
  Receipt Date: 20170622
  Transmission Date: 20170830
  Serious: Yes (Hospitalization, Other)
  Sender: FDA-Public Use
  Company Number: JP-AMGEN-JPNCT2017075710

PATIENT
  Age: 60 Year
  Sex: Female
  Weight: 51.6 kg

DRUGS (5)
  1. 5-FU                               /00098801/ [Suspect]
     Active Substance: FLUOROURACIL
     Dosage: 3500 MG, Q2WEEKS
     Route: 041
     Dates: start: 20170330, end: 20170427
  2. CALCIUM LEVOFOLINATE [Concomitant]
     Active Substance: LEVOLEUCOVORIN CALCIUM
     Indication: RECTAL CANCER
     Dosage: 275 MG, Q2WEEKS
     Route: 041
     Dates: start: 20170330, end: 20170427
  3. PANITUMUMAB [Suspect]
     Active Substance: PANITUMUMAB
     Indication: RECTAL CANCER
     Dosage: UNK UNK, Q2WK
     Route: 041
     Dates: start: 20170330, end: 20170427
  4. OXALIPLATIN. [Suspect]
     Active Substance: OXALIPLATIN
     Indication: RECTAL CANCER
     Dosage: 120 MG, Q2WEEKS
     Route: 041
     Dates: start: 20170330, end: 20170427
  5. 5-FU                               /00098801/ [Suspect]
     Active Substance: FLUOROURACIL
     Indication: RECTAL CANCER
     Dosage: 550 MG, Q2WK
     Route: 040
     Dates: start: 20170330, end: 20170427

REACTIONS (10)
  - Decreased appetite [Not Recovered/Not Resolved]
  - Stomatitis [Recovered/Resolved]
  - Dry skin [Not Recovered/Not Resolved]
  - Fatigue [Recovered/Resolved]
  - Vomiting [Not Recovered/Not Resolved]
  - Fatigue [Not Recovered/Not Resolved]
  - Device related infection [Recovering/Resolving]
  - Dermatitis acneiform [Recovered/Resolved]
  - Diarrhoea [Not Recovered/Not Resolved]
  - Nausea [Not Recovered/Not Resolved]

NARRATIVE: CASE EVENT DATE: 20170502
